FAERS Safety Report 10395177 (Version 1)
Quarter: 2014Q1

REPORT INFORMATION
  Report Type: Spontaneous
  Country: US (occurrence: None)
  Receive Date: 20130314
  Receipt Date: 20130314
  Transmission Date: 20141002
  Serious: Yes (Other)
  Sender: FDA-Public Use
  Company Number: 1112USA00626

PATIENT
  Age: 61 Year
  Sex: Male
  Weight: 95.3 kg

DRUGS (5)
  1. IVEMEND [Suspect]
     Indication: PROPHYLAXIS OF NAUSEA AND VOMITING
     Route: 041
     Dates: start: 20110209, end: 20110209
  2. DEXAMETHASONE [Concomitant]
  3. ZOFRAN (ONDANSETRON HYDROCHLORIDE) [Concomitant]
  4. METOCLOPRAMIDE [Concomitant]
  5. PROMETHIAZINE [Concomitant]

REACTIONS (3)
  - Chills [None]
  - Hot flush [None]
  - Blood pressure increased [None]
